FAERS Safety Report 5947945-9 (Version None)
Quarter: 2008Q4

REPORT INFORMATION
  Report Type: 
  Country: None (occurrence: None)
  Receive Date: 20081111
  Receipt Date: 20081002
  Transmission Date: 20090506
  Serious: No
  Sender: FDA-Public Use
  Company Number: A0750300A

PATIENT
  Sex: Male

DRUGS (1)
  1. TREXIMET [Suspect]
     Dosage: 1TAB SINGLE DOSE
     Route: 048
     Dates: start: 20080101, end: 20080101

REACTIONS (3)
  - DIZZINESS [None]
  - MICTURITION URGENCY [None]
  - TACHYCARDIA [None]
